FAERS Safety Report 5695142-7 (Version None)
Quarter: 2008Q2

REPORT INFORMATION
  Report Type: 
  Country: None (occurrence: None)
  Receive Date: 20080404
  Receipt Date: 20080326
  Transmission Date: 20081010
  Serious: Yes (Other)
  Sender: FDA-Public Use
  Company Number: US-PFIZER INC-2008026974

PATIENT
  Sex: Female
  Weight: 61.2 kg

DRUGS (3)
  1. CELEBREX [Suspect]
     Indication: ARTHRALGIA
  2. GLUCOSAMINE [Suspect]
     Indication: ARTHROPATHY
  3. DRUG, UNSPECIFIED [Concomitant]

REACTIONS (3)
  - EYE PRURITUS [None]
  - EYE SWELLING [None]
  - OCULAR HYPERAEMIA [None]
